FAERS Safety Report 9224357 (Version 1)
Quarter: 2013Q2

REPORT INFORMATION
  Report Type: Spontaneous
  Country: HU (occurrence: HU)
  Receive Date: 20130411
  Receipt Date: 20130411
  Transmission Date: 20140414
  Serious: Yes (Hospitalization)
  Sender: FDA-Public Use
  Company Number: HU-BAYER-2013-043394

PATIENT
  Age: 32 Year
  Sex: Female

DRUGS (2)
  1. ULTRAVIST [Suspect]
     Indication: UTERINE LEIOMYOMA EMBOLISATION
     Dosage: 50 ML, ONCE
     Dates: start: 20130313, end: 20130313
  2. DOLARGAN [Concomitant]
     Indication: PAIN
     Dosage: UNK
     Route: 030
     Dates: start: 20130313, end: 20130313

REACTIONS (4)
  - Asphyxia [Recovered/Resolved]
  - Laryngeal oedema [Recovered/Resolved]
  - Visual impairment [Recovered/Resolved]
  - Urticaria [Recovered/Resolved]
